FAERS Safety Report 18693479 (Version 1)
Quarter: 2021Q1

REPORT INFORMATION
  Report Type: Spontaneous
  Country: SY (occurrence: SY)
  Receive Date: 20210104
  Receipt Date: 20210104
  Transmission Date: 20210419
  Serious: Yes (Other)
  Sender: FDA-Public Use
  Company Number: SY-LUPIN PHARMACEUTICALS INC.-2020-11197

PATIENT
  Age: 52 Year
  Sex: Male

DRUGS (4)
  1. CEFTRIAXONE. [Suspect]
     Active Substance: CEFTRIAXONE
     Indication: CUTANEOUS LEISHMANIASIS
     Dosage: 500 MILLIGRAM, BID
     Route: 065
  2. GLUCANTIME [Suspect]
     Active Substance: MEGLUMINE ANTIMONIATE
     Indication: CUTANEOUS LEISHMANIASIS
     Dosage: UNK (INITIAL DOSE NOT STATED)
  3. DIPROGENTA [Suspect]
     Active Substance: BETAMETHASONE DIPROPIONATE\GENTAMICIN SULFATE
     Indication: CUTANEOUS LEISHMANIASIS
     Dosage: UNK
     Route: 061
  4. GLUCANTIME [Suspect]
     Active Substance: MEGLUMINE ANTIMONIATE
     Dosage: 60 MILLIGRAM/KILOGRAM, QD (ADMINISTERED IN TWO DIVIDED DOSES)

REACTIONS (1)
  - Electrocardiogram QT prolonged [Recovered/Resolved]
